FAERS Safety Report 5395407-2 (Version None)
Quarter: 2007Q3

REPORT INFORMATION
  Report Type: 
  Country: None (occurrence: None)
  Receive Date: 20070720
  Receipt Date: 20070618
  Transmission Date: 20080115
  Serious: No
  Sender: FDA-Public Use
  Company Number: DL2007223

PATIENT
  Age: 32 Year
  Sex: Female

DRUGS (2)
  1. MIFEPRISTONE TABLETS, 200 MG (DANCO LABS) [Suspect]
     Indication: ABORTION INDUCED
     Dosage: 200 MG, ORAL
     Route: 048
     Dates: start: 20070329
  2. MISOPROSTOL [Suspect]
     Dosage: 800 MCG, BUCCAL- 3/30/07 OR 3/31/07
     Route: 002
     Dates: start: 20070330

REACTIONS (1)
  - HAEMORRHAGE [None]
